FAERS Safety Report 15764501 (Version 1)
Quarter: 2018Q4

REPORT INFORMATION
  Report Type: Spontaneous
  Country: US (occurrence: US)
  Receive Date: 20181227
  Receipt Date: 20181227
  Transmission Date: 20190205
  Serious: Yes (Hospitalization)
  Sender: FDA-Public Use
  Company Number: None

PATIENT
  Age: 33 Year
  Sex: Female
  Weight: 57.6 kg

DRUGS (1)
  1. MOXIFLOXACIN OPHTHALMIC SOLUTION USP 0.5% [Suspect]
     Active Substance: MOXIFLOXACIN
     Indication: EYE INFECTION
     Dosage: ?          QUANTITY:1 DROP(S);?
     Route: 047
     Dates: start: 20181225, end: 20181226

REACTIONS (3)
  - Skin exfoliation [None]
  - Eye pain [None]
  - Hypersensitivity [None]

NARRATIVE: CASE EVENT DATE: 20181226
